FAERS Safety Report 8394687-9 (Version None)
Quarter: 2012Q2

REPORT INFORMATION
  Report Type: 
  Country: None (occurrence: None)
  Receive Date: 20120529
  Receipt Date: 20120529
  Transmission Date: 20120825
  Serious: No
  Sender: FDA-Public Use
  Company Number: None

PATIENT

DRUGS (1)
  1. TRAMADOL HCL [Suspect]
     Dosage: TRAMADOL 50MG 4 X A DAY

REACTIONS (2)
  - BURNING SENSATION [None]
  - HEADACHE [None]
